FAERS Safety Report 15391415 (Version 1)
Quarter: 2018Q3

REPORT INFORMATION
  Report Type: Spontaneous
  Country: US (occurrence: US)
  Receive Date: 20180910
  Receipt Date: 20180910
  Transmission Date: 20181010
  Serious: Yes (Hospitalization)
  Sender: FDA-Public Use
  Company Number: None

PATIENT
  Age: 71 Year
  Sex: Male
  Weight: 73.48 kg

DRUGS (1)
  1. VANCOMYCIN [Suspect]
     Active Substance: VANCOMYCIN
     Indication: OSTEOMYELITIS
     Route: 042
     Dates: start: 20180423, end: 20180505

REACTIONS (5)
  - Rash [None]
  - Antibiotic level above therapeutic [None]
  - Acute kidney injury [None]
  - Petechiae [None]
  - Eosinophilia [None]

NARRATIVE: CASE EVENT DATE: 20180504
